FAERS Safety Report 7265119-9 (Version None)
Quarter: 2011Q1

REPORT INFORMATION
  Report Type: 
  Country: None (occurrence: None)
  Receive Date: 20110131
  Receipt Date: 20110121
  Transmission Date: 20110831
  Serious: Yes (Hospitalization)
  Sender: FDA-Public Use
  Company Number: TR-MEDIMMUNE-MEDI-0011976

PATIENT
  Sex: Female
  Weight: 4 kg

DRUGS (2)
  1. LACTULOSE [Concomitant]
     Route: 048
  2. SYNAGIS [Suspect]
     Indication: RESPIRATORY DISTRESS
     Route: 030
     Dates: start: 20101025, end: 20101125

REACTIONS (3)
  - COUGH [None]
  - PRODUCTIVE COUGH [None]
  - BRONCHITIS [None]
